FAERS Safety Report 9104922 (Version 1)
Quarter: 2013Q1

REPORT INFORMATION
  Report Type: Spontaneous
  Country: US (occurrence: US)
  Receive Date: 20130220
  Receipt Date: 20130220
  Transmission Date: 20140127
  Serious: No
  Sender: FDA-Public Use
  Company Number: US-TEVA-386858USA

PATIENT
  Age: 52 Year
  Sex: Female
  Weight: 88.08 kg

DRUGS (7)
  1. NUVIGIL [Suspect]
     Indication: SOMNOLENCE
     Route: 048
     Dates: start: 20130213
  2. CHLORTHALIDONE [Concomitant]
     Indication: HYPERTENSION
  3. CARVEDILOL [Concomitant]
     Indication: HYPERTENSION
  4. SYNTHROID [Concomitant]
     Indication: HYPOTHYROIDISM
  5. PAROXETINE [Concomitant]
     Indication: SLEEP DISORDER
  6. FLONASE [Concomitant]
     Indication: HYPERSENSITIVITY
  7. PRAVASTATIN [Concomitant]
     Indication: BLOOD CHOLESTEROL INCREASED

REACTIONS (1)
  - Headache [Unknown]
